FAERS Safety Report 16755397 (Version 2)
Quarter: 2020Q4

REPORT INFORMATION
  Report Type: Report from Study
  Country: US (occurrence: US)
  Receive Date: 20190829
  Receipt Date: 20201202
  Transmission Date: 20210113
  Serious: Yes (Other)
  Sender: FDA-Public Use
  Company Number: US-JNJFOC-20190823739

PATIENT
  Age: 48 Year
  Sex: Female
  Weight: 104.42 kg

DRUGS (8)
  1. IRON [Concomitant]
     Active Substance: IRON
  2. BETAMETHASONE. [Concomitant]
     Active Substance: BETAMETHASONE
     Indication: PSORIASIS
     Dates: start: 201907
  3. TREMFYA [Suspect]
     Active Substance: GUSELKUMAB
     Indication: PSORIASIS
     Route: 058
     Dates: start: 20190703
  4. VITAMIN B12 [Concomitant]
     Active Substance: CYANOCOBALAMIN
     Indication: PRODUCT USED FOR UNKNOWN INDICATION
  5. VITAMIN D                          /00107901/ [Concomitant]
     Active Substance: ERGOCALCIFEROL
  6. SALICYLIC ACID. [Concomitant]
     Active Substance: SALICYLIC ACID
     Dates: start: 201907
  7. BABY ASPIRIN [Concomitant]
     Active Substance: ASPIRIN
  8. STEROID CLOBETASOL [Concomitant]
     Indication: PSORIASIS
     Dates: start: 201907

REACTIONS (12)
  - Musculoskeletal stiffness [Recovered/Resolved]
  - Nausea [Recovered/Resolved]
  - Feeling abnormal [Not Recovered/Not Resolved]
  - Mental impairment [Unknown]
  - Hypokinesia [Recovered/Resolved]
  - Oral pain [Unknown]
  - Neck pain [Recovered/Resolved]
  - Abdominal pain upper [Not Recovered/Not Resolved]
  - Morning sickness [Unknown]
  - Pain [Unknown]
  - Arthralgia [Not Recovered/Not Resolved]
  - Muscle tightness [Recovered/Resolved]

NARRATIVE: CASE EVENT DATE: 2019
